FAERS Safety Report 6036144-0 (Version None)
Quarter: 2009Q1

REPORT INFORMATION
  Report Type: 
  Country: None (occurrence: None)
  Receive Date: 20090113
  Receipt Date: 20081203
  Transmission Date: 20090719
  Serious: Yes (Other)
  Sender: FDA-Public Use
  Company Number: US-PFIZER INC-2008100534

PATIENT
  Sex: Female
  Weight: 43.084 kg

DRUGS (6)
  1. CHANTIX [Suspect]
     Indication: SMOKING CESSATION THERAPY
     Dosage: 0.5 MG, 2X/DAY
     Dates: start: 20081119, end: 20081124
  2. OXYCONTIN [Concomitant]
  3. ALL OTHER THERAPEUTIC PRODUCTS [Concomitant]
  4. SOMA [Concomitant]
  5. NEXIUM [Concomitant]
  6. DILTIAZEM [Concomitant]
     Dosage: UNK

REACTIONS (1)
  - VIOLENCE-RELATED SYMPTOM [None]
